FAERS Safety Report 14531823 (Version 1)
Quarter: 2018Q1

REPORT INFORMATION
  Report Type: Report from Study
  Country: LV (occurrence: LV)
  Receive Date: 20180214
  Receipt Date: 20180214
  Transmission Date: 20180509
  Serious: Yes (Other)
  Sender: FDA-Public Use
  Company Number: LV-TEVA-2018-LV-849819

PATIENT
  Age: 73 Year
  Sex: Male

DRUGS (12)
  1. CARBOPLATIN. [Suspect]
     Active Substance: CARBOPLATIN
     Indication: SMALL CELL LUNG CANCER
     Dosage: WILL BE ADMINISTERED ON DAY 1 OF EACH 21-DAY CYCLE CALVERT FORMULA WITH A TARGET AUC = 5 MILLIGRAMS
     Route: 042
  2. METFORMIN [Concomitant]
     Active Substance: METFORMIN HYDROCHLORIDE
     Route: 048
     Dates: start: 201709
  3. NEBILET [Concomitant]
     Active Substance: NEBIVOLOL
     Indication: MYOCARDIAL INFARCTION
     Dosage: 5 MILLIGRAM DAILY;
     Route: 048
     Dates: start: 2013, end: 20171129
  4. DIGOXINUM [Concomitant]
     Indication: ATRIAL FIBRILLATION
     Route: 048
     Dates: start: 20171207
  5. ETOPOSIDE. [Suspect]
     Active Substance: ETOPOSIDE
     Indication: SMALL CELL LUNG CANCER
     Dosage: 100 MG/M2 WILL BE ADMINISTERED IV DAILY ON DAYS 1, 2, AND 3 OF EACH 21-DAY CYCLE.
     Route: 042
  6. ATORVASTATIN [Concomitant]
     Active Substance: ATORVASTATIN
     Indication: DYSLIPIDAEMIA
     Route: 048
     Dates: start: 2013
  7. BISOPROLOL [Concomitant]
     Active Substance: BISOPROLOL
     Indication: ATRIAL FIBRILLATION
     Route: 048
     Dates: start: 20171130
  8. ATEZOLIZUMAB. [Suspect]
     Active Substance: ATEZOLIZUMAB
     Indication: SMALL CELL LUNG CANCER
     Dosage: 1200 MG WILL BE ADMINISTERED AS AN IV ON DAY 1 OF EACH 21-DAY CYCLE.
     Route: 042
  9. BLINDED TRILACICLIB [Suspect]
     Active Substance: TRILACICLIB
     Indication: SMALL CELL LUNG CANCER
     Dosage: ONCE DAILY ON DAYS 1, 2 AND 3 OF EACH 21-DAY
     Route: 042
     Dates: start: 20171122
  10. ULTRACOD [Concomitant]
     Dosage: 00MG/30MG
     Route: 048
     Dates: start: 20171101
  11. NOLIPREL FORTE [Concomitant]
     Indication: ESSENTIAL HYPERTENSION
     Dosage: 5MG/1.25MG
     Route: 048
     Dates: start: 2013
  12. HJERTEMAGNYL [Concomitant]
     Active Substance: ASPIRIN\MAGNESIUM OXIDE
     Indication: MYOCARDIAL INFARCTION
     Route: 048
     Dates: start: 2013

REACTIONS (2)
  - Febrile neutropenia [Recovered/Resolved]
  - Thrombocytopenia [Recovering/Resolving]

NARRATIVE: CASE EVENT DATE: 20171203
